FAERS Safety Report 23182517 (Version 1)
Quarter: 2023Q4

REPORT INFORMATION
  Report Type: Spontaneous
  Country: US (occurrence: US)
  Receive Date: 20231114
  Receipt Date: 20231114
  Transmission Date: 20240110
  Serious: No
  Sender: FDA-Public Use
  Company Number: US-OptiNose US, Inc-2022OPT000184

PATIENT
  Sex: Female

DRUGS (1)
  1. XHANCE [Suspect]
     Active Substance: FLUTICASONE PROPIONATE
     Indication: Nasal polyps
     Dosage: 1 TO 2 SPRAYS
     Route: 045
     Dates: start: 20221027, end: 20221031

REACTIONS (4)
  - Insomnia [Unknown]
  - Off label use [Unknown]
  - Headache [Unknown]
  - Toothache [Unknown]

NARRATIVE: CASE EVENT DATE: 20221027
